FAERS Safety Report 4782609-9 (Version None)
Quarter: 2005Q3

REPORT INFORMATION
  Report Type: 
  Country: None (occurrence: None)
  Receive Date: 20050929
  Receipt Date: 20050422
  Transmission Date: 20060218
  Serious: No
  Sender: FDA-Public Use
  Company Number: 403126

PATIENT
  Age: 70 Year
  Sex: Female

DRUGS (3)
  1. CARVEDILOL [Suspect]
     Route: 048
  2. PAXIL CR [Concomitant]
  3. FUROSEMIDE [Concomitant]

REACTIONS (2)
  - DISORIENTATION [None]
  - NIGHTMARE [None]
